FAERS Safety Report 5331162-X (Version None)
Quarter: 2007Q2

REPORT INFORMATION
  Report Type: 
  Country: None (occurrence: None)
  Receive Date: 20070306
  Receipt Date: 20070122
  Transmission Date: 20071010
  Serious: Yes (Hospitalization)
  Sender: FDA-Public Use
  Company Number: 07-000156

PATIENT
  Age: 16 Year
  Sex: Male

DRUGS (1)
  1. DORYX [Suspect]
     Indication: ACNE
     Dosage: 100 MG, QD, ORAL
     Route: 048
     Dates: start: 20061122, end: 20061130

REACTIONS (1)
  - OESOPHAGEAL ULCER [None]
